FAERS Safety Report 9317634 (Version 1)
Quarter: 2013Q2

REPORT INFORMATION
  Report Type: Spontaneous
  Country: US (occurrence: US)
  Receive Date: 20130530
  Receipt Date: 20130530
  Transmission Date: 20140414
  Serious: No
  Sender: FDA-Public Use
  Company Number: US-GLAXOSMITHKLINE-A0974806A

PATIENT
  Age: 66 Year
  Sex: Female

DRUGS (9)
  1. VENTOLIN [Suspect]
     Indication: BRONCHOSPASM
     Dosage: 1PUFF FOUR TIMES PER DAY
     Route: 055
     Dates: start: 2009
  2. UNKNOWN MEDICATION [Suspect]
     Indication: PRODUCT USED FOR UNKNOWN INDICATION
  3. SINGULAIR [Concomitant]
  4. DULERA [Concomitant]
  5. SPIRIVA [Concomitant]
  6. METFORMIN [Concomitant]
  7. SUPPLEMENT [Concomitant]
  8. ARMOUR THYROID [Concomitant]
  9. BIOIDENTICAL ESTROGEN [Concomitant]

REACTIONS (1)
  - Muscle spasms [Unknown]
